FAERS Safety Report 5014433-6 (Version None)
Quarter: 2006Q2

REPORT INFORMATION
  Report Type: 
  Country: None (occurrence: None)
  Receive Date: 20060531
  Receipt Date: 20060420
  Transmission Date: 20061013
  Serious: Yes (Death, Other)
  Sender: FDA-Public Use
  Company Number: PHEH2006US05197

PATIENT
  Age: 71 Year
  Sex: Male

DRUGS (3)
  1. CLOZARIL [Suspect]
     Indication: SCHIZOAFFECTIVE DISORDER
  2. COGENTIN [Concomitant]
     Indication: SALIVARY HYPERSECRETION
     Dosage: 2 MG, QD
     Route: 048
     Dates: start: 20051109, end: 20060401
  3. WELLBUTRIN SR [Concomitant]
     Indication: DEPRESSED MOOD
     Dosage: 150 MG, BID
     Route: 048
     Dates: start: 20020709, end: 20060401

REACTIONS (2)
  - NEOPLASM MALIGNANT [None]
  - RENAL FAILURE [None]
